FAERS Safety Report 21517606 (Version 1)
Quarter: 2022Q4

REPORT INFORMATION
  Report Type: Spontaneous
  Country: US (occurrence: US)
  Receive Date: 20221028
  Receipt Date: 20221028
  Transmission Date: 20230113
  Serious: Yes (Hospitalization, Other)
  Sender: FDA-Public Use
  Company Number: US-GLAND PHARMA LIMITED-2022US004708

PATIENT
  Age: 52 Year
  Sex: Male

DRUGS (2)
  1. VERAPAMIL HYDROCHLORIDE [Suspect]
     Active Substance: VERAPAMIL HYDROCHLORIDE
     Indication: Vascular occlusion
     Dosage: UNK
     Route: 013
  2. NITROGLYCERIN [Concomitant]
     Active Substance: NITROGLYCERIN
     Indication: Vascular occlusion
     Dosage: UNK
     Route: 042

REACTIONS (1)
  - Compartment syndrome [Unknown]
